FAERS Safety Report 6949310-4 (Version None)
Quarter: 2010Q3

REPORT INFORMATION
  Report Type: 
  Country: None (occurrence: None)
  Receive Date: 20100828
  Receipt Date: 20091214
  Transmission Date: 20110219
  Serious: No
  Sender: FDA-Public Use
  Company Number: US-ABBOTT-09P-163-0615247-00

PATIENT
  Sex: Male
  Weight: 82.628 kg

DRUGS (5)
  1. NIASPAN [Suspect]
     Indication: BLOOD CHOLESTEROL INCREASED
     Dates: start: 20071101, end: 20090801
  2. NIASPAN [Suspect]
     Dates: start: 20090801
  3. CRESTOR [Concomitant]
     Indication: PRODUCT USED FOR UNKNOWN INDICATION
  4. LANOXIN [Concomitant]
     Indication: PRODUCT USED FOR UNKNOWN INDICATION
  5. PLAVIX [Concomitant]
     Indication: PRODUCT USED FOR UNKNOWN INDICATION

REACTIONS (1)
  - BLOOD TRIGLYCERIDES INCREASED [None]
